FAERS Safety Report 21872856 (Version 2)
Quarter: 2023Q1

REPORT INFORMATION
  Report Type: Spontaneous
  Country: US (occurrence: US)
  Receive Date: 20230117
  Receipt Date: 20230119
  Transmission Date: 20230418
  Serious: Yes (Hospitalization)
  Sender: FDA-Public Use
  Company Number: US-PFIZER INC-202300018351

PATIENT
  Age: 86 Year
  Sex: Male

DRUGS (3)
  1. SOLU-MEDROL [Suspect]
     Active Substance: METHYLPREDNISOLONE SODIUM SUCCINATE
     Dosage: 40 MG (EVERY 8 HOURS FOR 5 DAYS)
     Route: 042
     Dates: start: 20221206, end: 20221210
  2. SOLU-MEDROL [Suspect]
     Active Substance: METHYLPREDNISOLONE SODIUM SUCCINATE
     Dosage: 40 MG, 2X/DAY (FOR 5 DAYS)
     Route: 042
     Dates: start: 20221225, end: 20221230
  3. PREDNISONE [Concomitant]
     Active Substance: PREDNISONE
     Dosage: 5 MG, DAILY
     Route: 048

REACTIONS (8)
  - Respiratory disorder [Recovering/Resolving]
  - Muscular weakness [Recovering/Resolving]
  - Gait inability [Recovering/Resolving]
  - Influenza [Unknown]
  - Oxygen saturation decreased [Unknown]
  - Tremor [Recovering/Resolving]
  - Nervousness [Not Recovered/Not Resolved]
  - Tremor [Not Recovered/Not Resolved]
